FAERS Safety Report 6072063-1 (Version None)
Quarter: 2009Q1

REPORT INFORMATION
  Report Type: 
  Country: None (occurrence: None)
  Receive Date: 20090205
  Receipt Date: 20090205
  Transmission Date: 20090719
  Serious: No
  Sender: FDA-Public Use
  Company Number: None

PATIENT
  Age: 26 Year
  Sex: Female
  Weight: 99.7913 kg

DRUGS (2)
  1. NUVARING [Suspect]
     Indication: CONTRACEPTION
     Dosage: 0.120 MG DAY INTRA-UTERINE
     Route: 015
     Dates: start: 20060117, end: 20070518
  2. NUVARING [Suspect]
     Indication: CONTRACEPTION
     Dosage: 0.120 MG DAY INTRA-UTERINE
     Route: 015
     Dates: start: 20071020, end: 20090204

REACTIONS (2)
  - MUSCLE CONTRACTIONS INVOLUNTARY [None]
  - VAGINAL DISORDER [None]
